FAERS Safety Report 10081218 (Version 2)
Quarter: 2014Q2

REPORT INFORMATION
  Report Type: Spontaneous
  Country: US (occurrence: US)
  Receive Date: 20140416
  Receipt Date: 20140509
  Transmission Date: 20141212
  Serious: No
  Sender: FDA-Public Use
  Company Number: US-PFIZER INC-2014102697

PATIENT
  Age: 87 Year
  Sex: Female
  Weight: 93.42 kg

DRUGS (2)
  1. LYRICA [Suspect]
     Indication: NEUROPATHY PERIPHERAL
     Dosage: 50 MG, 3X/DAY
     Route: 048
  2. NORCO [Concomitant]
     Indication: ARTHRITIS
     Dosage: 7.5 MG, 3X/DAY

REACTIONS (3)
  - Pain [Unknown]
  - Middle insomnia [Unknown]
  - Restless legs syndrome [Unknown]
